FAERS Safety Report 8511676-1 (Version None)
Quarter: 2012Q3

REPORT INFORMATION
  Report Type: 
  Country: None (occurrence: None)
  Receive Date: 20120716
  Receipt Date: 20120711
  Transmission Date: 20120928
  Serious: Yes (Death)
  Sender: FDA-Public Use
  Company Number: US-ASTRAZENECA-2012SE03152

PATIENT
  Age: 66 Year
  Sex: Male

DRUGS (5)
  1. NEXIUM [Suspect]
     Route: 048
  2. ZOLOFT [Concomitant]
  3. ASPIRIN [Concomitant]
     Route: 048
  4. MULTI-VITAMIN [Concomitant]
  5. ZOFRAN [Concomitant]

REACTIONS (1)
  - SMALL CELL LUNG CANCER METASTATIC [None]
